FAERS Safety Report 16944038 (Version 1)
Quarter: 2019Q4

REPORT INFORMATION
  Report Type: Spontaneous
  Country: US (occurrence: US)
  Receive Date: 20191022
  Receipt Date: 20191022
  Transmission Date: 20200122
  Serious: No
  Sender: FDA-Public Use
  Company Number: US-CELGENEUS-USA-20191005219

PATIENT
  Age: 45 Year
  Sex: Male

DRUGS (1)
  1. OTEZLA [Suspect]
     Active Substance: APREMILAST
     Indication: PRODUCT USED FOR UNKNOWN INDICATION
     Dosage: 60 MG X 4 DAY OF WEEK AND 30 MG X 2?DAYS.
     Route: 048
     Dates: start: 201902

REACTIONS (5)
  - Rash macular [Unknown]
  - Abdominal pain upper [Unknown]
  - Headache [Unknown]
  - Depressed mood [Unknown]
  - Faeces soft [Unknown]

NARRATIVE: CASE EVENT DATE: 20191014
